FAERS Safety Report 5390132-6 (Version None)
Quarter: 2007Q3

REPORT INFORMATION
  Report Type: 
  Country: None (occurrence: None)
  Receive Date: 20070716
  Receipt Date: 20070716
  Transmission Date: 20080115
  Serious: Yes (Other)
  Sender: FDA-Public Use
  Company Number: None

PATIENT
  Age: 56 Year
  Sex: Female
  Weight: 54.4316 kg

DRUGS (3)
  1. SINGULAIR [Suspect]
     Indication: EAR DISORDER
     Dosage: ONE TABLET  1 X AY
     Dates: start: 20070628, end: 20070707
  2. SINGULAIR [Suspect]
     Indication: INFLAMMATION
     Dosage: ONE TABLET  1 X AY
     Dates: start: 20070628, end: 20070707
  3. SINGULAIR [Suspect]
     Indication: PHARYNGITIS
     Dosage: ONE TABLET  1 X AY
     Dates: start: 20070628, end: 20070707

REACTIONS (4)
  - BURNING SENSATION [None]
  - DISCOMFORT [None]
  - PRURITUS [None]
  - RASH [None]
